FAERS Safety Report 14340091 (Version 1)
Quarter: 2017Q4

REPORT INFORMATION
  Report Type: Spontaneous
  Country: TW (occurrence: TW)
  Receive Date: 20171231
  Receipt Date: 20171231
  Transmission Date: 20180321
  Serious: Yes (Hospitalization)
  Sender: FDA-Public Use
  Company Number: PHHY2017TW195971

PATIENT

DRUGS (2)
  1. TASIGNA [Suspect]
     Active Substance: NILOTINIB
     Indication: CHRONIC MYELOID LEUKAEMIA
     Dosage: 300 MG, BID
     Route: 065
     Dates: start: 2013
  2. TASIGNA [Suspect]
     Active Substance: NILOTINIB
     Indication: NON-SMALL CELL LUNG CANCER

REACTIONS (4)
  - Asthma [Unknown]
  - Acute myocardial infarction [Unknown]
  - Discomfort [Unknown]
  - Chest discomfort [Unknown]
